FAERS Safety Report 6732846-9 (Version None)
Quarter: 2010Q2

REPORT INFORMATION
  Report Type: 
  Country: None (occurrence: None)
  Receive Date: 20100519
  Receipt Date: 20100507
  Transmission Date: 20101027
  Serious: Yes (Hospitalization)
  Sender: FDA-Public Use
  Company Number: SE-ELI_LILLY_AND_COMPANY-SE201002006709

PATIENT
  Sex: Female
  Weight: 70 kg

DRUGS (2)
  1. CYMBALTA [Suspect]
     Indication: DEPRESSION
     Dosage: 30 MG, 2/D
     Route: 048
  2. CYMBALTA [Suspect]
     Dosage: 60 MG, 3/D
     Route: 048

REACTIONS (2)
  - MICTURITION DISORDER [None]
  - OVERDOSE [None]
